FAERS Safety Report 9729489 (Version 2)
Quarter: 2013Q4

REPORT INFORMATION
  Report Type: Spontaneous
  Country: US (occurrence: US)
  Receive Date: 20131204
  Receipt Date: 20131204
  Transmission Date: 20140711
  Serious: No
  Sender: FDA-Public Use
  Company Number: US-GILEAD-2009-0021417

PATIENT
  Sex: Male
  Weight: 61.23 kg

DRUGS (10)
  1. LETAIRIS [Suspect]
     Indication: PULMONARY ARTERIAL HYPERTENSION
     Dates: start: 200807
  2. ATENOLOL [Concomitant]
  3. DIGOXIN [Concomitant]
  4. ZOCOR [Concomitant]
  5. METOLAZONE [Concomitant]
  6. DEMADEX [Concomitant]
  7. WARFARIN [Concomitant]
  8. AMBIEN [Concomitant]
  9. KCL [Concomitant]
  10. FERROUS SULFATE [Concomitant]

REACTIONS (1)
  - No therapeutic response [Unknown]
